FAERS Safety Report 13486709 (Version 2)
Quarter: 2017Q2

REPORT INFORMATION
  Report Type: Report from Study
  Country: CA (occurrence: CA)
  Receive Date: 20170426
  Receipt Date: 20170606
  Transmission Date: 20170830
  Serious: Yes (Death)
  Sender: FDA-Public Use
  Company Number: CA-HLSUS-2017-CA-000418

PATIENT
  Age: 61 Year
  Sex: Male

DRUGS (1)
  1. CLOZARIL [Suspect]
     Active Substance: CLOZAPINE
     Route: 048
     Dates: start: 20030925, end: 20170319

REACTIONS (1)
  - Cardiac failure [Fatal]
